FAERS Safety Report 8845282 (Version 1)
Quarter: 2012Q4

REPORT INFORMATION
  Report Type: Spontaneous
  Country: US (occurrence: None)
  Receive Date: 20121015
  Receipt Date: 20121015
  Transmission Date: 20130627
  Serious: Yes (Other)
  Sender: FDA-Public Use
  Company Number: 2012AP003324

PATIENT
  Age: 28 Year
  Sex: Female

DRUGS (2)
  1. ZOLPIDEM [Suspect]
     Indication: INTENTIONAL DRUG MISUSE
  2. ZOLPIDEM [Suspect]
     Indication: INSOMNIA

REACTIONS (4)
  - Hallucination, visual [None]
  - Intentional drug misuse [None]
  - Diplopia [None]
  - Logorrhoea [None]
